FAERS Safety Report 10981219 (Version 2)
Quarter: 2015Q2

REPORT INFORMATION
  Report Type: Spontaneous
  Country: US (occurrence: US)
  Receive Date: 20150402
  Receipt Date: 20150525
  Transmission Date: 20150821
  Serious: No
  Sender: FDA-Public Use
  Company Number: US-JNJFOC-20150205856

PATIENT
  Age: 59 Year
  Sex: Male
  Weight: 72.58 kg

DRUGS (2)
  1. IMODIUM MULTI-SYMPTOM RELIEF [Suspect]
     Active Substance: DIMETHICONE\LOPERAMIDE HYDROCHLORIDE
     Indication: DIARRHOEA
     Dosage: 1-2 CAPLETS (AS NEEDED)
     Route: 048
     Dates: start: 201501, end: 20150203
  2. IMODIUM MULTI-SYMPTOM RELIEF [Suspect]
     Active Substance: DIMETHICONE\LOPERAMIDE HYDROCHLORIDE
     Route: 048

REACTIONS (5)
  - Dysphagia [Recovered/Resolved]
  - Product taste abnormal [Unknown]
  - Product size issue [Unknown]
  - Product coating issue [Unknown]
  - Choking [Recovered/Resolved]
